FAERS Safety Report 6887667-3 (Version None)
Quarter: 2010Q3

REPORT INFORMATION
  Report Type: 
  Country: None (occurrence: None)
  Receive Date: 20100730
  Receipt Date: 20100722
  Transmission Date: 20110219
  Serious: Yes (Death, Life-Threatening, Hospitalization)
  Sender: FDA-Public Use
  Company Number: FR-ROCHE-559294

PATIENT
  Sex: Female
  Weight: 86 kg

DRUGS (11)
  1. HERCEPTIN [Suspect]
     Dosage: FORM: POWDER AND SOLVENT FOR SOLUTION FOR INFUSION. ROUTE: INTRAVENOUS (NOT OTHERWISE SPECIFIED).
     Route: 042
     Dates: start: 20070101, end: 20070201
  2. FLUOROURACIL [Suspect]
     Dosage: FORM: SOLUTION FOR INFUSION.  ROUTE: INTRAVENOUS (NOT OTHERWISE SPECIFIED).
     Route: 042
     Dates: start: 20061101, end: 20061201
  3. TAXOTERE [Suspect]
     Dosage: FORM: SOLUTION FOR INFUSION.  ROUTE: INTRAVENOUS (NOT OTHERWISE SPECIFIED). STRENGTH: 80 MG/ML.
     Route: 042
     Dates: start: 20061201, end: 20070101
  4. CYCLOPHOSPHAMIDE [Suspect]
     Dosage: FORM: POWDER+SOLVENT (LYOPHILISATE). ROUTE: INTRAVENOUS (NOT OTHERWISE SPECIFIED.
     Route: 042
     Dates: start: 20061101, end: 20061201
  5. EPIRUBICIN HYDROCHLORIDE [Suspect]
     Dosage: DRUG REPORTED AS: CHLORHYDRATE D' EPIRUBICINE. FORM: SOLUTION FOR INFUSION.
     Route: 042
     Dates: start: 20061101, end: 20061201
  6. CRESTOR [Concomitant]
  7. PANTOPRAZOLE SODIUM [Concomitant]
  8. CYCLOPHOSPHAMIDE [Concomitant]
  9. VINCRISTINE [Concomitant]
  10. DOXORUBICIN HCL [Concomitant]
  11. DEXAMETHASONE [Concomitant]

REACTIONS (2)
  - ACUTE LYMPHOCYTIC LEUKAEMIA [None]
  - ACUTE MYELOID LEUKAEMIA [None]
